FAERS Safety Report 21746468 (Version 1)
Quarter: 2022Q4

REPORT INFORMATION
  Report Type: Spontaneous
  Country: US (occurrence: US)
  Receive Date: 20221219
  Receipt Date: 20221219
  Transmission Date: 20230113
  Serious: No
  Sender: FDA-Public Use
  Company Number: US-AUROBINDO-AUR-APL-2022-028954

PATIENT
  Age: 76 Year
  Sex: Female
  Weight: 57 kg

DRUGS (4)
  1. AMOXICILLIN [Suspect]
     Active Substance: AMOXICILLIN
     Indication: Tooth infection
     Dosage: 500 MILLIGRAM, 3 TIMES A DAY
     Route: 048
     Dates: start: 20220712, end: 20220718
  2. GABAPENTIN [Suspect]
     Active Substance: GABAPENTIN
     Indication: Product used for unknown indication
     Dosage: UNK
     Route: 065
  3. CYMBALTA [Concomitant]
     Active Substance: DULOXETINE HYDROCHLORIDE
     Indication: Product used for unknown indication
     Dosage: UNK
     Route: 065
  4. VITAMIN D [Concomitant]
     Active Substance: VITAMIN D NOS
     Indication: Product used for unknown indication
     Dosage: UNK
     Route: 065

REACTIONS (5)
  - Abdominal pain [Recovered/Resolved]
  - Abdominal distension [Recovered/Resolved]
  - Diarrhoea [Recovered/Resolved]
  - Flatulence [Recovered/Resolved]
  - Product dose omission issue [Unknown]

NARRATIVE: CASE EVENT DATE: 20220715
